FAERS Safety Report 9334396 (Version 1)
Quarter: 2013Q2

REPORT INFORMATION
  Report Type: Spontaneous
  Country: US (occurrence: US)
  Receive Date: 20130606
  Receipt Date: 20130606
  Transmission Date: 20140414
  Serious: No
  Sender: FDA-Public Use
  Company Number: US-AMGEN-USASP2013027127

PATIENT
  Age: 80 Year
  Sex: Female

DRUGS (10)
  1. PROLIA [Suspect]
     Indication: OSTEOPENIA
     Dosage: UNK
     Dates: start: 201211
  2. VITAMIN D                          /00318501/ [Concomitant]
     Dosage: 50000 IU, QWK
  3. LISINOPRIL [Concomitant]
  4. ROPINIROLE [Concomitant]
  5. VITAMIN C                          /00008001/ [Concomitant]
     Dosage: 8 PER DAY
  6. VITAMIN B COMPLEX [Concomitant]
  7. VITAMIN B12                        /00056201/ [Concomitant]
  8. OPTIMAX [Concomitant]
  9. COQ10                              /00517201/ [Concomitant]
  10. VITAMIN E                          /00110501/ [Concomitant]
     Dosage: 1-2 TIMES A WEEK

REACTIONS (3)
  - Jaw disorder [Unknown]
  - Blister [Recovering/Resolving]
  - Cellulitis [Unknown]
